FAERS Safety Report 4821197-5 (Version None)
Quarter: 2005Q4

REPORT INFORMATION
  Report Type: 
  Country: None (occurrence: None)
  Receive Date: 20051103
  Receipt Date: 20051014
  Transmission Date: 20060501
  Serious: Yes (Other)
  Sender: FDA-Public Use
  Company Number: USA0509109039

PATIENT
  Age: 77 Year
  Sex: Female
  Weight: 50 kg

DRUGS (6)
  1. FORTEO [Suspect]
     Indication: OSTEOPOROSIS
     Dosage: 20M UG DAY
     Dates: start: 20040801, end: 20050901
  2. CALCIUM CARBONATE  + VITAMIN D [Concomitant]
  3. BENICAR [Concomitant]
  4. HYDROCHLOROTHIAZIDE [Concomitant]
  5. CRESTOR [Concomitant]
  6. ASPIRIN [Concomitant]

REACTIONS (8)
  - BONE DENSITY DECREASED [None]
  - CEREBROVASCULAR ACCIDENT [None]
  - ENDOMETRIAL CANCER METASTATIC [None]
  - HEADACHE [None]
  - MALAISE [None]
  - NAUSEA [None]
  - URINE CALCIUM INCREASED [None]
  - VIRAL INFECTION [None]
